FAERS Safety Report 4926375-2 (Version None)
Quarter: 2006Q1

REPORT INFORMATION
  Report Type: 
  Country: None (occurrence: None)
  Receive Date: 20060228
  Receipt Date: 20051108
  Transmission Date: 20060701
  Serious: No
  Sender: FDA-Public Use
  Company Number: S2005US17430

PATIENT
  Age: 42 Year

DRUGS (2)
  1. LAMICTAL [Suspect]
     Indication: EPILEPSY
     Dosage: 100MG TWICE PER DAY
     Route: 048
     Dates: start: 20050901
  2. NO CONCURRENT MEDICATION [Concomitant]

REACTIONS (3)
  - ALOPECIA [None]
  - FATIGUE [None]
  - SOMNOLENCE [None]
